FAERS Safety Report 10007474 (Version 2)
Quarter: 2014Q1

REPORT INFORMATION
  Report Type: Spontaneous
  Country: US (occurrence: US)
  Receive Date: 20140313
  Receipt Date: 20140318
  Transmission Date: 20141002
  Serious: Yes (Hospitalization, Other)
  Sender: FDA-Public Use
  Company Number: US-TEVA-468558USA

PATIENT
  Age: 28 Year
  Sex: Female

DRUGS (2)
  1. METRONIDAZOLE [Suspect]
     Indication: BACTERIAL INFECTION
     Dates: start: 20140202, end: 20140203
  2. PRENATAL VITAMINS [Concomitant]

REACTIONS (4)
  - Abdominal wall haemorrhage [Recovered/Resolved]
  - Abdominal pain [Recovered/Resolved]
  - Abortion spontaneous [Recovered/Resolved]
  - Abdominal pain [Recovered/Resolved]
